FAERS Safety Report 10089883 (Version 1)
Quarter: 2014Q2

REPORT INFORMATION
  Report Type: Report from Study
  Country: US (occurrence: US)
  Receive Date: 20140421
  Receipt Date: 20140421
  Transmission Date: 20141212
  Serious: No
  Sender: FDA-Public Use
  Company Number: US-ABBVIE-13P-163-1121522-00

PATIENT
  Age: 8 Year
  Sex: Female
  Weight: 46.76 kg

DRUGS (2)
  1. LUPRON DEPOT-PED (3 MONTH) [Suspect]
     Indication: PRECOCIOUS PUBERTY
     Dates: start: 201304
  2. LUPRON DEPOT-PED (3 MONTH) [Suspect]
     Route: 030
     Dates: start: 201201, end: 201304

REACTIONS (5)
  - Emotional disorder [Not Recovered/Not Resolved]
  - Weight increased [Not Recovered/Not Resolved]
  - Hot flush [Not Recovered/Not Resolved]
  - Hot flush [Not Recovered/Not Resolved]
  - Drug ineffective [Unknown]
